FAERS Safety Report 6000999-6 (Version None)
Quarter: 2008Q4

REPORT INFORMATION
  Report Type: 
  Country: None (occurrence: None)
  Receive Date: 20081215
  Receipt Date: 20080401
  Transmission Date: 20090506
  Serious: No
  Sender: FDA-Public Use
  Company Number: US-BRISTOL-MYERS SQUIBB COMPANY-14133599

PATIENT
  Age: 62 Year
  Sex: Female

DRUGS (1)
  1. CHOLESTYRAMINE [Suspect]
     Dosage: ORAL SUSPENSION
     Route: 048

REACTIONS (3)
  - DYSPNOEA [None]
  - GASTROINTESTINAL DISORDER [None]
  - THERAPEUTIC RESPONSE DECREASED [None]
